FAERS Safety Report 5472816-4 (Version None)
Quarter: 2007Q4

REPORT INFORMATION
  Report Type: 
  Country: None (occurrence: None)
  Receive Date: 20071001
  Receipt Date: 20061201
  Transmission Date: 20080405
  Serious: Yes (Other)
  Sender: FDA-Public Use
  Company Number: US-ASTRAZENECA-2006UW26914

PATIENT
  Age: 66 Year
  Sex: Female
  Weight: 77.1 kg

DRUGS (5)
  1. ARIMIDEX [Suspect]
     Indication: BREAST CANCER FEMALE
     Route: 048
     Dates: start: 20060901
  2. TAMOXIFEN CITRATE [Concomitant]
     Dates: start: 20010101, end: 20060901
  3. ALTACE [Concomitant]
  4. EFFEXOR [Concomitant]
  5. ZYRTEC [Concomitant]

REACTIONS (1)
  - BREAST CANCER RECURRENT [None]
